FAERS Safety Report 14954966 (Version 1)
Quarter: 2018Q2

REPORT INFORMATION
  Report Type: Spontaneous
  Country: FR (occurrence: FR)
  Receive Date: 20180530
  Receipt Date: 20180530
  Transmission Date: 20180711
  Serious: Yes (Other)
  Sender: FDA-Public Use
  Company Number: FR-MERCK KGAA-2048724

PATIENT
  Age: 44 Year
  Sex: Female

DRUGS (1)
  1. NOVOTHYROX [Suspect]
     Active Substance: LEVOTHYROXINE SODIUM
     Indication: POST PROCEDURAL HYPOTHYROIDISM

REACTIONS (33)
  - Mean cell haemoglobin concentration increased [None]
  - Migraine [None]
  - Blood thyroid stimulating hormone decreased [None]
  - Neuropathy peripheral [None]
  - Blood uric acid decreased [None]
  - Vision blurred [None]
  - Depression [None]
  - Muscle spasms [None]
  - Impaired work ability [None]
  - Pain in extremity [None]
  - Fatigue [None]
  - Pain [None]
  - Constipation [None]
  - Headache [None]
  - Middle insomnia [None]
  - Insomnia [None]
  - Weight decreased [None]
  - Nausea [None]
  - Blood creatine phosphokinase [None]
  - Abdominal discomfort [None]
  - Dry mouth [None]
  - Decreased appetite [None]
  - Social avoidant behaviour [None]
  - Emotional distress [None]
  - Basophil count increased [None]
  - Myalgia [None]
  - Blood glucose increased [None]
  - Dizziness [None]
  - Mood swings [None]
  - Amnesia [None]
  - Feeling abnormal [None]
  - Gait disturbance [None]
  - Gastrointestinal disorder [None]

NARRATIVE: CASE EVENT DATE: 20170825
